FAERS Safety Report 16458036 (Version 1)
Quarter: 2019Q2

REPORT INFORMATION
  Report Type: Spontaneous
  Country: US (occurrence: US)
  Receive Date: 20190620
  Receipt Date: 20190620
  Transmission Date: 20190711
  Serious: No
  Sender: FDA-Public Use
  Company Number: US-PFIZER INC-2019259624

PATIENT
  Age: 61 Year
  Sex: Male
  Weight: 94.33 kg

DRUGS (27)
  1. REFRESH PM [PARAFFIN, LIQUID;WHITE SOFT PARAFFIN;WOOL ALCOHOLS] [Concomitant]
     Dosage: UNK
  2. ASPIR 81 [Concomitant]
     Active Substance: ASPIRIN
     Dosage: UNK
  3. TYLENOL [Concomitant]
     Active Substance: ACETAMINOPHEN
     Dosage: UNK
  4. TRAZODONE [Concomitant]
     Active Substance: TRAZODONE HYDROCHLORIDE
     Indication: SLEEP DISORDER
     Dosage: UNK
  5. GLIMEPIRIDE. [Concomitant]
     Active Substance: GLIMEPIRIDE
     Dosage: UNK
  6. NABUMETONE. [Concomitant]
     Active Substance: NABUMETONE
     Dosage: 500 MILLIGRAM, EACH MORNING
     Route: 048
  7. ENALAPRIL [Concomitant]
     Active Substance: ENALAPRIL
     Dosage: UNK
  8. XIGDUO XR [Concomitant]
     Active Substance: DAPAGLIFLOZIN PROPANEDIOL\METFORMIN HYDROCHLORIDE
     Dosage: UNK
  9. COREG [Concomitant]
     Active Substance: CARVEDILOL
     Dosage: UNK
  10. VITAMIN C [Concomitant]
     Active Substance: ASCORBIC ACID
     Dosage: UNK
  11. LIPITOR [Concomitant]
     Active Substance: ATORVASTATIN CALCIUM
     Dosage: UNK
  12. LASIX [Concomitant]
     Active Substance: FUROSEMIDE
     Dosage: UNK
  13. POTASSIUM [Concomitant]
     Active Substance: POTASSIUM
     Dosage: UNK
  14. PANTOPRAZOLE [Concomitant]
     Active Substance: PANTOPRAZOLE
     Dosage: UNK
  15. SIMVASTATIN. [Concomitant]
     Active Substance: SIMVASTATIN
     Dosage: UNK
  16. ENBREL [Concomitant]
     Active Substance: ETANERCEPT
     Indication: RHEUMATOID ARTHRITIS
     Dosage: UNK UNK, QWK
     Route: 065
     Dates: end: 201806
  17. NABUMETONE. [Concomitant]
     Active Substance: NABUMETONE
     Dosage: 750 MILLIGRAM
  18. PROTONIX [OMEPRAZOLE] [Concomitant]
     Active Substance: OMEPRAZOLE
     Dosage: UNK
  19. PACERONE [Concomitant]
     Active Substance: AMIODARONE HYDROCHLORIDE
     Dosage: UNK
  20. AMITRIPTYLENE [Concomitant]
     Active Substance: AMITRIPTYLINE
     Dosage: UNK
  21. FLUTICASONE. [Concomitant]
     Active Substance: FLUTICASONE
     Dosage: UNK, AS NEEDED
  22. XARELTO [Concomitant]
     Active Substance: RIVAROXABAN
     Dosage: UNK
  23. BYDUREON [Concomitant]
     Active Substance: EXENATIDE
     Dosage: UNK
  24. LINZESS [Concomitant]
     Active Substance: LINACLOTIDE
     Dosage: UNK
  25. XELJANZ [Suspect]
     Active Substance: TOFACITINIB CITRATE
     Dosage: UNK
     Dates: end: 201901
  26. HYDROXYCHLOROQUINE [Concomitant]
     Active Substance: HYDROXYCHLOROQUINE
     Dosage: 200 MILLIGRAM, 2 TABLET QD
     Route: 048
  27. VICTOZA [Concomitant]
     Active Substance: LIRAGLUTIDE
     Dosage: UNK

REACTIONS (1)
  - Drug ineffective [Unknown]
